FAERS Safety Report 5529495-7 (Version None)
Quarter: 2007Q4

REPORT INFORMATION
  Report Type: 
  Country: None (occurrence: None)
  Receive Date: 20071129
  Receipt Date: 20071119
  Transmission Date: 20080405
  Serious: Yes (Hospitalization, Other)
  Sender: FDA-Public Use
  Company Number: ES-GILEAD-2007-0014419

PATIENT
  Age: 40 Year
  Sex: Male

DRUGS (3)
  1. VIREAD [Suspect]
     Indication: HIV INFECTION
  2. DIDANOSINE [Concomitant]
     Indication: HIV INFECTION
  3. KALETRA [Concomitant]
     Indication: HIV INFECTION

REACTIONS (6)
  - ANOREXIA [None]
  - ASTHENIA [None]
  - FANCONI SYNDROME ACQUIRED [None]
  - OSTEOMALACIA [None]
  - RIB FRACTURE [None]
  - WEIGHT DECREASED [None]
